FAERS Safety Report 6626311-7 (Version None)
Quarter: 2010Q1

REPORT INFORMATION
  Report Type: 
  Country: None (occurrence: None)
  Receive Date: 20100309
  Receipt Date: 20100309
  Transmission Date: 20100710
  Serious: Yes (Hospitalization)
  Sender: FDA-Public Use
  Company Number: None

PATIENT
  Sex: Male

DRUGS (9)
  1. ROSUVASTATIN [Suspect]
     Indication: HYPERLIPIDAEMIA
     Dosage: 20 MG DAILY PO
     Route: 048
     Dates: start: 20091001, end: 20091005
  2. ERGOCALCIFEROL [Concomitant]
  3. COZAAR [Concomitant]
  4. HYDROCHLOROTHIAZIDE [Concomitant]
  5. PREDNISONE [Concomitant]
  6. PROGRAF [Concomitant]
  7. ASPIRIN [Concomitant]
  8. METOPROLOL [Concomitant]
  9. HUMULIN R [Concomitant]

REACTIONS (2)
  - CHEST PAIN [None]
  - HALLUCINATION [None]
